FAERS Safety Report 8459757-5 (Version None)
Quarter: 2012Q2

REPORT INFORMATION
  Report Type: 
  Country: None (occurrence: None)
  Receive Date: 20120622
  Receipt Date: 20120615
  Transmission Date: 20120825
  Serious: Yes (Hospitalization, Disabling, Other)
  Sender: FDA-Public Use
  Company Number: US-MERCK-1202USA03887

PATIENT
  Age: 50 Year
  Sex: Female
  Weight: 78 kg

DRUGS (8)
  1. KAVA [Concomitant]
     Route: 065
  2. FOSAMAX [Suspect]
     Route: 048
     Dates: start: 20000301
  3. FOSAMAX [Suspect]
     Indication: OSTEOPOROSIS
     Route: 048
     Dates: start: 20000101
  4. FOSAMAX [Suspect]
     Route: 048
  5. EFFEXOR [Concomitant]
     Route: 065
  6. PREMARIN [Concomitant]
     Route: 065
  7. FOSAMAX PLUS D [Suspect]
     Indication: OSTEOPOROSIS
     Route: 048
     Dates: start: 20080101
  8. ST JOHNS WORT [Concomitant]
     Route: 065

REACTIONS (39)
  - BONE FRAGMENTATION [None]
  - POST LUMBAR PUNCTURE SYNDROME [None]
  - ADVERSE EVENT [None]
  - FEAR [None]
  - SPINAL OSTEOARTHRITIS [None]
  - HYPERVENTILATION [None]
  - HAEMANGIOMA [None]
  - SYNOVIAL CYST [None]
  - VERTEBRAL FORAMINAL STENOSIS [None]
  - STRESS FRACTURE [None]
  - LIPOMATOSIS [None]
  - PARAESTHESIA [None]
  - CHONDROMALACIA [None]
  - BLADDER DISORDER [None]
  - TIBIA FRACTURE [None]
  - TENDON DISORDER [None]
  - SYNOVITIS [None]
  - STRESS URINARY INCONTINENCE [None]
  - FEMUR FRACTURE [None]
  - INTERVERTEBRAL DISC PROTRUSION [None]
  - NIGHT SWEATS [None]
  - CARPAL TUNNEL SYNDROME [None]
  - ANKLE IMPINGEMENT [None]
  - SPONDYLOLISTHESIS [None]
  - MULTIPLE SCLEROSIS [None]
  - RIB FRACTURE [None]
  - OSTEONECROSIS [None]
  - DEVICE FAILURE [None]
  - OSTEOARTHRITIS [None]
  - FOOT FRACTURE [None]
  - TENOSYNOVITIS [None]
  - SEXUAL DYSFUNCTION [None]
  - AVULSION FRACTURE [None]
  - BACK DISORDER [None]
  - FALL [None]
  - ANKLE FRACTURE [None]
  - MENISCUS LESION [None]
  - LOW TURNOVER OSTEOPATHY [None]
  - URINARY TRACT INFECTION [None]
